FAERS Safety Report 7110708-5 (Version None)
Quarter: 2010Q4

REPORT INFORMATION
  Report Type: 
  Country: None (occurrence: None)
  Receive Date: 20101118
  Receipt Date: 20101115
  Transmission Date: 20110411
  Serious: Yes (Other)
  Sender: FDA-Public Use
  Company Number: A0892559A

PATIENT
  Sex: Female

DRUGS (11)
  1. PAXIL [Suspect]
     Indication: DEPRESSION
     Dosage: 20MG UNKNOWN
     Route: 048
     Dates: start: 20001107, end: 20040806
  2. DIAZEPAM [Concomitant]
  3. HYDROCODONE [Concomitant]
  4. NORTRIPTYLINE [Concomitant]
  5. OXYCODONE HCL [Concomitant]
  6. ACTOS [Concomitant]
  7. SYNTHROID [Concomitant]
  8. ENALAPRIL MALEATE [Concomitant]
  9. LOVAZA [Concomitant]
  10. LYRICA [Concomitant]
  11. VITAMIN D SUPPLEMENT [Concomitant]

REACTIONS (2)
  - HALLUCINATION, AUDITORY [None]
  - TREATMENT NONCOMPLIANCE [None]
